FAERS Safety Report 11348064 (Version 1)
Quarter: 2015Q3

REPORT INFORMATION
  Report Type: Spontaneous
  Country: US (occurrence: US)
  Receive Date: 20150803
  Receipt Date: 20150803
  Transmission Date: 20151125
  Serious: No
  Sender: FDA-Public Use
  Company Number: US-ELI_LILLY_AND_COMPANY-US201202001238

PATIENT
  Age: 87 Year
  Sex: Female

DRUGS (5)
  1. ZYPREXA [Suspect]
     Active Substance: OLANZAPINE
     Dosage: 0.5 DF, EACH EVENING
  2. CYMBALTA [Concomitant]
     Active Substance: DULOXETINE HYDROCHLORIDE
     Indication: DEPRESSION
     Dosage: 90 MG, UNK
  3. LITHIUM. [Concomitant]
     Active Substance: LITHIUM
     Dosage: 150 MG, EACH MORNING
  4. LITHIUM. [Concomitant]
     Active Substance: LITHIUM
     Dosage: 450 MG, EACH EVENING
  5. ZYPREXA [Suspect]
     Active Substance: OLANZAPINE
     Indication: DEPRESSION
     Dosage: 2.5 MG, EACH EVENING

REACTIONS (3)
  - Off label use [Not Recovered/Not Resolved]
  - Somnolence [Recovered/Resolved]
  - Wrong technique in product usage process [Not Recovered/Not Resolved]
